FAERS Safety Report 7078315-0 (Version None)
Quarter: 2010Q4

REPORT INFORMATION
  Report Type: 
  Country: None (occurrence: None)
  Receive Date: 20101102
  Receipt Date: 20101015
  Transmission Date: 20110411
  Serious: Yes (Hospitalization)
  Sender: FDA-Public Use
  Company Number: US-BAYER-200941572NA

PATIENT
  Age: 21 Year
  Sex: Female
  Weight: 49 kg

DRUGS (2)
  1. YAZ [Suspect]
     Indication: MENSTRUATION IRREGULAR
     Route: 048
     Dates: start: 20050101, end: 20090101
  2. YASMIN [Suspect]
     Indication: MENSTRUATION IRREGULAR
     Route: 048
     Dates: start: 20050101, end: 20090101

REACTIONS (1)
  - CHOLECYSTECTOMY [None]
